FAERS Safety Report 7646710-4 (Version None)
Quarter: 2011Q3

REPORT INFORMATION
  Report Type: 
  Country: None (occurrence: None)
  Receive Date: 20110801
  Receipt Date: 20110721
  Transmission Date: 20111222
  Serious: Yes (Hospitalization, Other)
  Sender: FDA-Public Use
  Company Number: US-BAYER-2010-007302

PATIENT
  Age: 30 Year
  Sex: Female
  Weight: 78.912 kg

DRUGS (7)
  1. HYDROXYZINE HCL [Concomitant]
     Dosage: 25 MG, UNK
  2. YASMIN [Suspect]
     Indication: PRODUCT USED FOR UNKNOWN INDICATION
     Dosage: UNK
     Dates: start: 20090425, end: 20091025
  3. CETIRIZINE HCL [Concomitant]
     Indication: PRURITUS
     Dosage: 10 MG, UNK
     Route: 048
  4. PROMETHAZINE HCL W/PHENYLEPH.HCL/CODE.PHOS. [Concomitant]
     Route: 048
  5. MATERNA SELENIUM [Concomitant]
  6. MEDROL [Concomitant]
     Dosage: 4 MG, UNK
  7. LEVSIN [Concomitant]
     Dosage: 0.125 MG, UNK

REACTIONS (6)
  - PAIN [None]
  - HEPATIC MASS [None]
  - CHOLECYSTITIS CHRONIC [None]
  - GALLBLADDER DISORDER [None]
  - INJURY [None]
  - FOCAL NODULAR HYPERPLASIA [None]
